FAERS Safety Report 9657923 (Version 1)
Quarter: 2013Q4

REPORT INFORMATION
  Report Type: Spontaneous
  Country: US (occurrence: US)
  Receive Date: 20131030
  Receipt Date: 20131030
  Transmission Date: 20140711
  Serious: Yes (Other)
  Sender: FDA-Public Use
  Company Number: US-NOVEN-13US007959

PATIENT
  Age: 19 Year
  Sex: Female

DRUGS (6)
  1. PEXEVA [Suspect]
     Indication: OBSESSIVE-COMPULSIVE DISORDER
     Dosage: 15 MG (SPLITS 30 MG TABLET)
     Route: 048
  2. PROGESTERONE [Concomitant]
     Indication: MENSTRUAL CYCLE MANAGEMENT
     Dosage: 10 MG, DAYS 12 THROUGH 26 OF HER MENSTRUAL CYCLE
     Route: 061
  3. HYDROCODONE [Concomitant]
     Indication: PAIN
     Dosage: UNK
     Route: 048
     Dates: start: 201310, end: 201310
  4. IBUPROFEN [Concomitant]
     Indication: PAIN
     Dosage: 2400 MG, QD
     Route: 048
     Dates: start: 20131008, end: 20131010
  5. IBUPROFEN [Concomitant]
     Dosage: 1200 MG, QD
     Route: 048
     Dates: start: 20131011, end: 20131013
  6. IBUPROFEN [Concomitant]
     Dosage: 600 MG, QD
     Route: 048
     Dates: start: 20131014

REACTIONS (11)
  - Compartment syndrome [Recovering/Resolving]
  - Limb injury [Recovering/Resolving]
  - Malaise [Not Recovered/Not Resolved]
  - Headache [Not Recovered/Not Resolved]
  - Dizziness [Not Recovered/Not Resolved]
  - Nausea [Not Recovered/Not Resolved]
  - Hyperhidrosis [Not Recovered/Not Resolved]
  - Insomnia [Not Recovered/Not Resolved]
  - Contusion [Not Recovered/Not Resolved]
  - Drug dose omission [Recovered/Resolved]
  - Drug administration error [Not Recovered/Not Resolved]
